FAERS Safety Report 5652750-7 (Version None)
Quarter: 2008Q1

REPORT INFORMATION
  Report Type: 
  Country: None (occurrence: None)
  Receive Date: 20080305
  Receipt Date: 20080305
  Transmission Date: 20080703
  Serious: Yes (Other)
  Sender: FDA-Public Use
  Company Number: None

PATIENT
  Age: 57 Year
  Sex: Female
  Weight: 66.6788 kg

DRUGS (6)
  1. FENTANYL TRANSDERMAL SYSTEM [Suspect]
     Indication: ADDISON'S DISEASE
     Dosage: 25MCG EVERY 48 HOURS TRANSDERMAL
     Route: 062
     Dates: start: 20070202, end: 20070304
  2. FENTANYL TRANSDERMAL SYSTEM [Suspect]
     Indication: OSTEOARTHRITIS
     Dosage: 25MCG EVERY 48 HOURS TRANSDERMAL
     Route: 062
     Dates: start: 20070202, end: 20070304
  3. FENTANYL TRANSDERMAL SYSTEM [Suspect]
     Indication: PAIN
     Dosage: 25MCG EVERY 48 HOURS TRANSDERMAL
     Route: 062
     Dates: start: 20070202, end: 20070304
  4. FENTANYL-12 [Suspect]
     Indication: ADDISON'S DISEASE
     Dosage: 12MCG EVERY 48 HOURS TRANSDERMAL
     Route: 062
     Dates: start: 20070205, end: 20070301
  5. FENTANYL-12 [Suspect]
     Indication: OSTEOARTHRITIS
     Dosage: 12MCG EVERY 48 HOURS TRANSDERMAL
     Route: 062
     Dates: start: 20070205, end: 20070301
  6. FENTANYL-12 [Suspect]
     Indication: PAIN
     Dosage: 12MCG EVERY 48 HOURS TRANSDERMAL
     Route: 062
     Dates: start: 20070205, end: 20070301

REACTIONS (1)
  - PHARMACEUTICAL PRODUCT COMPLAINT [None]
